FAERS Safety Report 21978626 (Version 1)
Quarter: 2023Q1

REPORT INFORMATION
  Report Type: Report from Study
  Country: US (occurrence: US)
  Receive Date: 20230210
  Receipt Date: 20230210
  Transmission Date: 20230418
  Serious: Yes (Hospitalization, Other)
  Sender: FDA-Public Use
  Company Number: US-GILEAD-2023-0616207

PATIENT
  Age: 56 Year
  Sex: Female

DRUGS (2)
  1. AZTREONAM LYSINE [Suspect]
     Active Substance: AZTREONAM LYSINE
     Indication: Product used for unknown indication
     Dosage: 1 ML (75 MG) VIA ALTERA NEBULIZER. THREE TIMES DAILY FOR 28 DAYS ON, 28 DAYS OFF.
     Route: 055
  2. AZATHIOPRINE [Concomitant]
     Active Substance: AZATHIOPRINE
     Dosage: UNK

REACTIONS (3)
  - Pneumonia [Unknown]
  - Clostridium difficile infection [Unknown]
  - Blood disorder [Unknown]
